FAERS Safety Report 10052517 (Version 3)
Quarter: 2014Q3

REPORT INFORMATION
  Report Type: Report from Study
  Country: DE (occurrence: DE)
  Receive Date: 20140402
  Receipt Date: 20140722
  Transmission Date: 20150326
  Serious: Yes (Hospitalization)
  Sender: FDA-Public Use
  Company Number: DE-ABBVIE-12P-062-0955450-00

PATIENT
  Age: 62 Year
  Sex: Female
  Weight: 62 kg

DRUGS (4)
  1. HUMIRA [Suspect]
     Active Substance: ADALIMUMAB
     Indication: RHEUMATOID ARTHRITIS
     Route: 058
     Dates: start: 20090930
  2. FOLIC ACID. [Concomitant]
     Active Substance: FOLIC ACID
     Indication: PRODUCT USED FOR UNKNOWN INDICATION
     Dosage: WEEKLY
     Route: 048
     Dates: start: 20110725
  3. ATACAND PLUS [Concomitant]
     Active Substance: CANDESARTAN CILEXETIL\HYDROCHLOROTHIAZIDE
     Indication: HYPERTENSION
     Dosage: 32/12.5 MG ONCE DAILY
     Route: 048
     Dates: start: 20070724
  4. METHOTREXATE (METHOTREXATE SODIUM) [Concomitant]
     Active Substance: METHOTREXATE SODIUM
     Indication: RHEUMATOID ARTHRITIS
     Dosage: WEEKLY
     Route: 048
     Dates: start: 20040824, end: 201210

REACTIONS (5)
  - Sudden hearing loss [Recovered/Resolved]
  - Dizziness [Recovered/Resolved]
  - Meniere^s disease [Not Recovered/Not Resolved]
  - Balance disorder [Unknown]
  - Tinnitus [Not Recovered/Not Resolved]

NARRATIVE: CASE EVENT DATE: 20120619
